FAERS Safety Report 5031450-0 (Version None)
Quarter: 2006Q2

REPORT INFORMATION
  Report Type: 
  Country: None (occurrence: None)
  Receive Date: 20060615
  Receipt Date: 20060608
  Transmission Date: 20061013
  Serious: Yes (Hospitalization, Other)
  Sender: FDA-Public Use
  Company Number: 200410555BCA

PATIENT
  Age: 75 Year
  Sex: Male

DRUGS (9)
  1. CIPROFLOXACIN [Suspect]
     Indication: LOCALISED INFECTION
     Dosage: 500 MG, BID, ORAL
     Route: 048
     Dates: start: 19991220, end: 20000126
  2. COUMADIN [Suspect]
     Indication: ATRIAL FIBRILLATION
     Dosage: 5 MG, QD, ORAL
     Route: 048
     Dates: end: 20000120
  3. ALLOPURINOL [Concomitant]
  4. DIGOXIN [Concomitant]
  5. FUROSEMIDE [Concomitant]
  6. GLYBURIDE [Concomitant]
  7. LISINOPRIL [Concomitant]
  8. METFORMIN [Concomitant]
  9. ACETAMINOPHEN W/ CODEINE [Concomitant]

REACTIONS (5)
  - DRUG INTERACTION [None]
  - EPISTAXIS [None]
  - EYE HAEMORRHAGE [None]
  - HAEMOPTYSIS [None]
  - PROTHROMBIN LEVEL DECREASED [None]
